FAERS Safety Report 8595648-7 (Version None)
Quarter: 2012Q3

REPORT INFORMATION
  Report Type: 
  Country: None (occurrence: None)
  Receive Date: 20120815
  Receipt Date: 20120508
  Transmission Date: 20120928
  Serious: No
  Sender: FDA-Public Use
  Company Number: US-FOUGERA-2012FO001096

PATIENT
  Age: 76 Year
  Sex: Male
  Weight: 68.04 kg

DRUGS (6)
  1. PRAVASTATIN [Concomitant]
     Indication: CARDIOVASCULAR EVENT PROPHYLAXIS
     Route: 048
  2. NITRO-BID [Suspect]
     Indication: NEUROPATHY PERIPHERAL
     Route: 061
     Dates: start: 20110601, end: 20120506
  3. CYANOCOBALAMIN [Concomitant]
     Indication: HYPOVITAMINOSIS
     Dosage: DOSE UNIT:1 TABLETS
     Route: 048
  4. NEFAZODONE HCL [Concomitant]
     Indication: AFFECTIVE DISORDER
     Dosage: DOSE UNIT:1 TABLETS
     Route: 048
  5. FENOFIBRATE [Concomitant]
     Indication: CARDIAC DISORDER
     Route: 048
  6. ASPIRIN [Concomitant]
     Indication: BLOOD DISORDER
     Route: 048

REACTIONS (3)
  - OFF LABEL USE [None]
  - CAPILLARITIS [None]
  - CONTUSION [None]
